FAERS Safety Report 16799536 (Version 1)
Quarter: 2019Q3

REPORT INFORMATION
  Report Type: Spontaneous
  Country: US (occurrence: US)
  Receive Date: 20190722
  Receipt Date: 20190722
  Transmission Date: 20191005
  Serious: No
  Sender: FDA-Public Use
  Company Number: None

PATIENT
  Age: 73 Year
  Sex: Male
  Weight: 81.65 kg

DRUGS (6)
  1. MULTIVITAMIN [Concomitant]
     Active Substance: VITAMINS
  2. EQUATE DRY EYE RELIEF LUBRICANT EYE DROPS, 30ML [Suspect]
     Active Substance: GLYCERIN\PROPYLENE GLYCOL
     Indication: DRY EYE
     Dates: end: 20190705
  3. GABAPENTINE [Concomitant]
     Active Substance: GABAPENTIN
  4. PRAVISTATIN [Concomitant]
     Active Substance: PRAVASTATIN
  5. JALYN [Concomitant]
     Active Substance: DUTASTERIDE\TAMSULOSIN HYDROCHLORIDE
  6. VITAMIN C [Concomitant]
     Active Substance: ASCORBIC ACID

REACTIONS (2)
  - Eye infection [None]
  - Corneal abrasion [None]

NARRATIVE: CASE EVENT DATE: 20190613
